FAERS Safety Report 25030556 (Version 2)
Quarter: 2025Q1

REPORT INFORMATION
  Report Type: Other
  Country: IN (occurrence: IN)
  Receive Date: 20250303
  Receipt Date: 20250311
  Transmission Date: 20250408
  Serious: Yes (Other)
  Sender: ALVOGEN
  Company Number: IN-ALVOGEN-2025096367

PATIENT
  Age: 40 Year
  Sex: Female

DRUGS (3)
  1. DEXAMETHASONE [Suspect]
     Active Substance: DEXAMETHASONE
     Indication: Warm autoimmune haemolytic anaemia
     Dosage: 4 WEEKS = 1 CYCLE
     Route: 048
  2. BORTEZOMIB [Suspect]
     Active Substance: BORTEZOMIB
     Indication: Warm autoimmune haemolytic anaemia
     Dosage: 4 WEEKS = 1 CYCLE?1.3 MG/M2 SUBCUTANEOUS/WEEK
     Route: 058
  3. ACYCLOVIR [Concomitant]
     Active Substance: ACYCLOVIR
     Indication: Herpes zoster

REACTIONS (1)
  - Thrombocytopenia [Recovering/Resolving]
